FAERS Safety Report 6275318-0 (Version None)
Quarter: 2009Q3

REPORT INFORMATION
  Report Type: 
  Country: None (occurrence: None)
  Receive Date: 20090721
  Receipt Date: 20090710
  Transmission Date: 20100115
  Serious: Yes (Other)
  Sender: FDA-Public Use
  Company Number: B0576073A

PATIENT
  Sex: Male
  Weight: 60 kg

DRUGS (4)
  1. PAXIL [Suspect]
     Indication: OBSESSIVE-COMPULSIVE DISORDER
     Dosage: 20MG PER DAY
     Route: 048
     Dates: start: 20070328
  2. TAMIFLU [Suspect]
     Indication: INFLUENZA
     Route: 048
  3. ANAFRANIL [Concomitant]
     Dosage: 20MG PER DAY
     Route: 048
     Dates: start: 20070328
  4. RIZE [Concomitant]
     Dosage: 10MG PER DAY
     Route: 048
     Dates: start: 20090328

REACTIONS (5)
  - ABNORMAL DREAMS [None]
  - AGGRESSION [None]
  - AGITATION [None]
  - LOGORRHOEA [None]
  - POOR QUALITY SLEEP [None]
